FAERS Safety Report 8560649-1 (Version None)
Quarter: 2012Q3

REPORT INFORMATION
  Report Type: 
  Country: None (occurrence: None)
  Receive Date: 20120802
  Receipt Date: 20120731
  Transmission Date: 20120928
  Serious: Yes (Other)
  Sender: FDA-Public Use
  Company Number: US-PFIZER INC-2012186263

PATIENT
  Sex: Female
  Weight: 52.154 kg

DRUGS (8)
  1. SYMBICORT [Concomitant]
     Dosage: UNK, 2X/DAY
  2. VITAMIN-MINERAL COMPOUND TAB [Concomitant]
     Dosage: UNK
  3. CLONAZEPAM [Concomitant]
     Dosage: UNK, 1X/DAY
  4. CALCIUM CITRATE [Concomitant]
     Dosage: UNK, 1X/DAY
  5. LIPITOR [Suspect]
     Indication: BLOOD CHOLESTEROL INCREASED
     Dosage: 10 MG, 1X/DAY
     Route: 048
  6. OMEPRAZOLE [Concomitant]
     Dosage: UNK, 1X/DAY
  7. FLAXSEED OIL [Concomitant]
     Dosage: UNK, 2X/DAY
  8. ASPIRIN [Concomitant]
     Dosage: 81 MG, 1X/DAY

REACTIONS (6)
  - EYE INJURY [None]
  - CARDIAC FAILURE CONGESTIVE [None]
  - ARTHRITIS [None]
  - LYMPHOMA [None]
  - SEASONAL ALLERGY [None]
  - CHRONIC LYMPHOCYTIC LEUKAEMIA [None]
